FAERS Safety Report 5777953-2 (Version None)
Quarter: 2008Q2

REPORT INFORMATION
  Report Type: 
  Country: None (occurrence: None)
  Receive Date: 20080618
  Receipt Date: 20080618
  Transmission Date: 20081010
  Serious: Yes (Hospitalization)
  Sender: FDA-Public Use
  Company Number: None

PATIENT
  Age: 69 Year
  Sex: Male

DRUGS (1)
  1. DIGOXIN [Suspect]
     Dosage: 0.25 MG PO DAILY
     Route: 048

REACTIONS (4)
  - BRADYCARDIA [None]
  - CARDIOACTIVE DRUG LEVEL DECREASED [None]
  - HYPOXIA [None]
  - LETHARGY [None]
